FAERS Safety Report 12873074 (Version 1)
Quarter: 2016Q4

REPORT INFORMATION
  Report Type: Spontaneous
  Country: NL (occurrence: NL)
  Receive Date: 20161021
  Receipt Date: 20161021
  Transmission Date: 20170207
  Serious: Yes (Hospitalization)
  Sender: FDA-Public Use
  Company Number: NL-TEVA-701670ACC

PATIENT
  Age: 79 Year
  Sex: Female

DRUGS (11)
  1. ENALAPRIL TABLET  2.5MG [Concomitant]
     Dosage: 2.5 MILLIGRAM DAILY; ONCE DAILY
     Route: 048
  2. COLECALCIFEROL TABLET   800IE [Concomitant]
     Dosage: 1 DOSAGE FORMS DAILY; ONCE DAILY
     Route: 048
  3. FUROSEMIDE TABLET 20MG [Concomitant]
     Dosage: 40 MILLIGRAM DAILY; TWICE DAILY
     Route: 048
  4. PARACETAMOL TABLET  500MG [Concomitant]
     Active Substance: ACETAMINOPHEN
     Dosage: 3000 MILLIGRAM DAILY; SIX TIMES DAILY
     Route: 048
  5. ACETYLSALICYLIC ACID TABLET  80MG [Concomitant]
     Dosage: 80 MILLIGRAM DAILY; ONCE DAILY
     Route: 048
  6. METFORMIN [Suspect]
     Active Substance: METFORMIN HYDROCHLORIDE
     Indication: TYPE 2 DIABETES MELLITUS
     Dosage: 2000 MILLIGRAM DAILY; 2 TIMES PER DAY 1 PIECE(S)
     Route: 048
     Dates: start: 20151201, end: 20161003
  7. PREGABALINE CAPSULE  75MG [Concomitant]
     Dosage: 150 MILLIGRAM DAILY; TWICE DAILY
     Route: 048
  8. GLICLAZIDE TABLET MGA 80MG [Concomitant]
     Dosage: 240 MILLIGRAM DAILY; THREE TIMES DAILY
     Route: 048
  9. OMEPRAZOL CAPSULE MSR 40MG [Concomitant]
     Active Substance: OMEPRAZOLE
     Dosage: 40 MILLIGRAM DAILY; ONCE DAILY
     Route: 048
  10. ATORVASTATINE TABLET 40MG (ALS CA-ZOUT-3-WATER) [Concomitant]
     Dosage: 40 MILLIGRAM DAILY; ONCE DAILY
     Route: 048
  11. METOPROLOL TABLET  100MG [Concomitant]
     Active Substance: METOPROLOL
     Dosage: 100 MILLIGRAM DAILY; ONCE DAILY
     Route: 048

REACTIONS (6)
  - Lactic acidosis [Recovering/Resolving]
  - Depressed level of consciousness [Recovering/Resolving]
  - Respiratory tract infection [Recovering/Resolving]
  - Dyspnoea [Recovering/Resolving]
  - Urinary tract infection [Recovering/Resolving]
  - Abdominal pain [Recovering/Resolving]

NARRATIVE: CASE EVENT DATE: 20161003
